FAERS Safety Report 21931834 (Version 3)
Quarter: 2023Q2

REPORT INFORMATION
  Report Type: Report from Study
  Country: US (occurrence: US)
  Receive Date: 20230131
  Receipt Date: 20230409
  Transmission Date: 20230722
  Serious: Yes (Hospitalization, Other)
  Sender: FDA-Public Use
  Company Number: US-ABBVIE-22K-163-4353594-00

PATIENT
  Sex: Male
  Weight: 66 kg

DRUGS (31)
  1. DUOPA [Suspect]
     Active Substance: CARBIDOPA\LEVODOPA
     Indication: Parkinson^s disease
     Route: 050
     Dates: start: 20180806
  2. DUOPA [Suspect]
     Active Substance: CARBIDOPA\LEVODOPA
     Route: 050
  3. LISINOPRIL [Concomitant]
     Active Substance: LISINOPRIL
     Indication: Blood pressure measurement
     Route: 065
  4. FINASTERIDE [Concomitant]
     Active Substance: FINASTERIDE
     Indication: Bladder disorder
     Route: 065
  5. BACTRIM [Concomitant]
     Active Substance: SULFAMETHOXAZOLE\TRIMETHOPRIM
     Indication: Product used for unknown indication
     Route: 048
  6. CLONIDINE [Concomitant]
     Active Substance: CLONIDINE
     Indication: Product used for unknown indication
     Dosage: FORM STRENGTH 0.1 MG
     Route: 048
  7. ASPIRIN [Concomitant]
     Active Substance: ASPIRIN
     Indication: Cerebrovascular accident
     Dosage: FORM STRENGTH 325MG
     Route: 048
  8. TRAMADOL [Concomitant]
     Active Substance: TRAMADOL
     Indication: Product used for unknown indication
     Dosage: FORM STRENGTH 50MG
     Route: 048
  9. TRIMETHOPRIM [Concomitant]
     Active Substance: TRIMETHOPRIM
     Indication: Product used for unknown indication
     Dosage: FORM STRENGTH 50MG
     Route: 048
  10. NUPLAZID [Concomitant]
     Active Substance: PIMAVANSERIN TARTRATE
     Indication: Product used for unknown indication
     Dosage: FROM STRENGTH 34MG
     Route: 048
  11. SINEMET [Concomitant]
     Active Substance: CARBIDOPA\LEVODOPA
     Indication: Product used for unknown indication
     Dosage: 25-100MG
     Route: 048
  12. XANAX [Concomitant]
     Active Substance: ALPRAZOLAM
     Indication: Product used for unknown indication
     Dosage: FORM STRENGTH 0.25
     Route: 048
  13. ELIDEL [Concomitant]
     Active Substance: PIMECROLIMUS
     Indication: Parkinson^s disease
     Dosage: FROM STRENGTH 1%
     Route: 061
  14. CLOBETASOL PROPIONATE [Concomitant]
     Active Substance: CLOBETASOL PROPIONATE
     Indication: Parkinson^s disease
     Dosage: FORM STRENGTH 0.5%
     Route: 048
  15. ESCITALOPRAM OXALATE [Concomitant]
     Active Substance: ESCITALOPRAM OXALATE
     Indication: Product used for unknown indication
     Dosage: FORM STRENGTH 20MG
     Route: 048
  16. CLEARLAX [Concomitant]
     Active Substance: POLYETHYLENE GLYCOL 3350
     Indication: Product used for unknown indication
     Dosage: FORM STRENGTH: 17 MG
     Route: 048
  17. CLONAZEPAM [Concomitant]
     Active Substance: CLONAZEPAM
     Indication: Product used for unknown indication
     Dosage: FORM STRENGTH 25MICROGRAM
     Route: 055
  18. ROPINIROLE [Concomitant]
     Active Substance: ROPINIROLE
     Indication: Product used for unknown indication
     Dosage: FORM STRENGTH 8MG
     Route: 048
  19. RASAGILINE MESYLATE [Concomitant]
     Active Substance: RASAGILINE MESYLATE
     Indication: Product used for unknown indication
     Dosage: FORM STRENGTH 1MG
     Route: 048
  20. EZETIMIBE [Concomitant]
     Active Substance: EZETIMIBE
     Indication: Product used for unknown indication
     Dosage: FORM STRENGTH 10MG
     Route: 048
  21. IBUPROFEN [Concomitant]
     Active Substance: IBUPROFEN
     Indication: Product used for unknown indication
     Dosage: FORM STRENGTH 800MG
     Route: 048
  22. VITAMIN D3 [Concomitant]
     Active Substance: CHOLECALCIFEROL
     Indication: Product used for unknown indication
     Dosage: FORM STRENGTH 5000UNIT
     Route: 048
  23. HYDROCHLOROTHIAZIDE [Concomitant]
     Active Substance: HYDROCHLOROTHIAZIDE
     Indication: Product used for unknown indication
     Dosage: FORM STRENGTH 25MG
     Route: 048
  24. GUAIFENESIN [Concomitant]
     Active Substance: GUAIFENESIN
     Indication: Product used for unknown indication
     Dosage: FORM STRENGTH 400MG
     Route: 048
  25. ACETAMINOPHEN [Concomitant]
     Active Substance: ACETAMINOPHEN
     Indication: Arthritis
     Dosage: FORM STRENGTH 650MG
     Route: 048
  26. ACETAMINOPHEN [Concomitant]
     Active Substance: ACETAMINOPHEN
     Indication: Arthritis
     Route: 048
  27. CORTISONE [Concomitant]
     Active Substance: CORTISONE
     Indication: Product used for unknown indication
     Dosage: FORM STRENGTH 1%
     Route: 061
  28. KETOCONAZOLE [Concomitant]
     Active Substance: KETOCONAZOLE
     Indication: Parkinson^s disease
     Dosage: FROM STRENGTH 2 PERCENT
     Route: 055
  29. FISH OIL [Concomitant]
     Active Substance: FISH OIL
     Indication: Product used for unknown indication
     Dosage: FORM STRENGTH 1000MG
     Route: 048
  30. NITROFURANTOIN [Concomitant]
     Active Substance: NITROFURANTOIN
     Indication: Urinary tract infection
     Dosage: FORM STRENGTH 150MG
  31. NITROFURANTOIN [Concomitant]
     Active Substance: NITROFURANTOIN
     Indication: Urinary tract infection

REACTIONS (8)
  - Cerebrovascular accident [Unknown]
  - Urinary tract infection [Not Recovered/Not Resolved]
  - Stoma site discharge [Recovered/Resolved]
  - Stoma site erythema [Recovered/Resolved]
  - Stoma site pain [Recovered/Resolved]
  - Urinary retention [Not Recovered/Not Resolved]
  - Hospitalisation [Unknown]
  - Malaise [Recovering/Resolving]

NARRATIVE: CASE EVENT DATE: 20220101
